FAERS Safety Report 19505320 (Version 1)
Quarter: 2021Q3

REPORT INFORMATION
  Report Type: Spontaneous
  Country: US (occurrence: US)
  Receive Date: 20210707
  Receipt Date: 20210707
  Transmission Date: 20211014
  Serious: Yes (Death, Hospitalization, Other)
  Sender: FDA-Public Use
  Company Number: US-AMGEN-USASP2021101710

PATIENT
  Age: 76 Year
  Sex: Male

DRUGS (2)
  1. CYCLOPHOSPHAMIDE;DOXORUBICIN;PREDNISONE;VINCRISTINE [Concomitant]
     Indication: FOLLICULAR LYMPHOMA
     Dosage: UNK
  2. RITUXIMAB. [Suspect]
     Active Substance: RITUXIMAB
     Indication: FOLLICULAR LYMPHOMA
     Dosage: UNK
     Route: 065

REACTIONS (5)
  - Status epilepticus [Unknown]
  - Urinary bladder rupture [Unknown]
  - Hyperammonaemia [Unknown]
  - Death [Fatal]
  - Sepsis [Unknown]
